FAERS Safety Report 26168434 (Version 2)
Quarter: 2025Q4

REPORT INFORMATION
  Report Type: Report from Study
  Country: EU (occurrence: EU)
  Receive Date: 20251217
  Receipt Date: 20251226
  Transmission Date: 20260118
  Serious: Yes (Hospitalization, Other)
  Sender: TAKEDA
  Company Number: EU-JNJFOC-20251210213

PATIENT
  Age: 66 Year
  Sex: Female

DRUGS (5)
  1. BORTEZOMIB [Suspect]
     Active Substance: BORTEZOMIB
     Indication: Plasma cell myeloma
     Dosage: UNK
  2. DARZALEX [Suspect]
     Active Substance: DARATUMUMAB
     Indication: Plasma cell myeloma
     Dosage: UNK
  3. CILTACABTAGENE AUTOLEUCEL [Suspect]
     Active Substance: CILTACABTAGENE AUTOLEUCEL
     Indication: Plasma cell myeloma
     Dosage: UNK
  4. TALQUETAMAB [Suspect]
     Active Substance: TALQUETAMAB
     Indication: Plasma cell myeloma
     Dosage: 0.8 MILLIGRAM/KILOGRAM, Q2WEEKS
     Dates: start: 20240603, end: 20240930
  5. TECLISTAMAB [Suspect]
     Active Substance: TECLISTAMAB
     Indication: Plasma cell myeloma
     Dosage: UNK

REACTIONS (1)
  - Urosepsis [Recovered/Resolved]

NARRATIVE: CASE EVENT DATE: 20250227
